FAERS Safety Report 5867199-1 (Version None)
Quarter: 2008Q3

REPORT INFORMATION
  Report Type: 
  Country: None (occurrence: None)
  Receive Date: 20080829
  Receipt Date: 20080829
  Transmission Date: 20090109
  Serious: No
  Sender: FDA-Public Use
  Company Number: None

PATIENT

DRUGS (1)
  1. NEXAVAR [Suspect]
     Indication: HEPATIC NEOPLASM MALIGNANT
     Dosage: 400 MG BID PO
     Route: 048
     Dates: start: 20080624, end: 20080828

REACTIONS (4)
  - ABDOMINAL PAIN [None]
  - OROPHARYNGEAL PAIN [None]
  - RASH [None]
  - WEIGHT DECREASED [None]
